FAERS Safety Report 5914659-0 (Version None)
Quarter: 2008Q4

REPORT INFORMATION
  Report Type: 
  Country: None (occurrence: None)
  Receive Date: 20081008
  Receipt Date: 20080926
  Transmission Date: 20090506
  Serious: Yes (Hospitalization)
  Sender: FDA-Public Use
  Company Number: 98698

PATIENT
  Age: 75 Year
  Sex: Female

DRUGS (6)
  1. SIMVASTATIN TABLETS 80 MG / UNKNOWN [Suspect]
     Indication: HYPERLIPIDAEMIA
     Dosage: 80 MG/QD/ORAL
     Route: 048
  2. ERLOTINIB [Suspect]
     Indication: NON-SMALL CELL LUNG CANCER
  3. EZETIMIBE [Concomitant]
  4. ACETYLSALICYLIC ACID SRT [Concomitant]
  5. ATENOLOL [Concomitant]
  6. AMLODIPINE [Concomitant]

REACTIONS (3)
  - DRUG INTERACTION [None]
  - HYPERBILIRUBINAEMIA [None]
  - RHABDOMYOLYSIS [None]
